FAERS Safety Report 8150725-X (Version None)
Quarter: 2012Q1

REPORT INFORMATION
  Report Type: 
  Country: None (occurrence: None)
  Receive Date: 20120220
  Receipt Date: 20120214
  Transmission Date: 20120608
  Serious: Yes (Death, Other)
  Sender: FDA-Public Use
  Company Number: PHEH2011US011343

PATIENT
  Sex: Male

DRUGS (2)
  1. EXJADE [Suspect]
     Indication: MYELODYSPLASTIC SYNDROME
     Dosage: 1500 MG, QD (2 TABLETS IN AM AND 1 TABLET IN PM)
     Route: 048
  2. EXJADE [Suspect]
     Dosage: 1500 MG, QD
     Route: 048

REACTIONS (4)
  - HEADACHE [None]
  - NAUSEA [None]
  - DEATH [None]
  - NEOPLASM MALIGNANT [None]
